FAERS Safety Report 23989226 (Version 1)
Quarter: 2024Q2

REPORT INFORMATION
  Report Type: Spontaneous
  Country: PL (occurrence: PL)
  Receive Date: 20240619
  Receipt Date: 20240619
  Transmission Date: 20240715
  Serious: Yes (Other)
  Sender: FDA-Public Use
  Company Number: None

PATIENT
  Age: 21 Year
  Sex: Female
  Weight: 49 kg

DRUGS (3)
  1. ANAFRANIL [Suspect]
     Active Substance: CLOMIPRAMINE HYDROCHLORIDE
     Indication: Bipolar disorder
     Route: 048
     Dates: start: 20190514, end: 20190527
  2. LAMOTRIGINE [Suspect]
     Active Substance: LAMOTRIGINE
     Indication: Bipolar disorder
     Route: 048
     Dates: start: 20190514, end: 20190527
  3. DESLORATADINE [Concomitant]
     Active Substance: DESLORATADINE
     Indication: Oropharyngeal pain
     Dosage: PATIENT TOOK THE DRUG TWO DAYS BEFORE THE RASH APPEARED
     Route: 048

REACTIONS (1)
  - Drug eruption [Recovering/Resolving]

NARRATIVE: CASE EVENT DATE: 20190525
